FAERS Safety Report 14438310 (Version 1)
Quarter: 2018Q1

REPORT INFORMATION
  Report Type: Spontaneous
  Country: US (occurrence: US)
  Receive Date: 20180125
  Receipt Date: 20180125
  Transmission Date: 20180509
  Serious: No
  Sender: FDA-Public Use
  Company Number: US-PFIZER INC-2018030857

PATIENT
  Age: 70 Year
  Sex: Female
  Weight: 59.42 kg

DRUGS (1)
  1. XELJANZ XR [Suspect]
     Active Substance: TOFACITINIB CITRATE
     Indication: RHEUMATOID ARTHRITIS
     Dosage: 11 MG, TABLET, ORALLY, ONCE
     Route: 048

REACTIONS (7)
  - Rash [Recovered/Resolved]
  - Asthma [Recovered/Resolved]
  - Nasopharyngitis [Recovered/Resolved]
  - Gingival disorder [Recovered/Resolved]
  - Hypertonic bladder [Recovered/Resolved]
  - Infection [Recovered/Resolved]
  - Memory impairment [Recovered/Resolved]
